FAERS Safety Report 6270243-3 (Version None)
Quarter: 2009Q3

REPORT INFORMATION
  Report Type: 
  Country: None (occurrence: None)
  Receive Date: 20090716
  Receipt Date: 20090626
  Transmission Date: 20100115
  Serious: No
  Sender: FDA-Public Use
  Company Number: US-BAYER-200911959BCC

PATIENT
  Age: 51 Year
  Sex: Male
  Weight: 75 kg

DRUGS (3)
  1. ALEVE [Suspect]
     Indication: TOOTH EXTRACTION
     Dosage: TOTAL DAILY DOSE: 440 MG  UNIT DOSE: 220 MG
     Route: 048
     Dates: start: 20090624, end: 20090624
  2. ALEVE [Suspect]
     Dosage: TOTAL DAILY DOSE: 220 MG  UNIT DOSE: 220 MG
     Route: 048
     Dates: start: 20090625, end: 20090626
  3. ALPRAZOLAM [Concomitant]
     Indication: UNEVALUABLE EVENT
     Route: 065

REACTIONS (1)
  - BLOOD PRESSURE INCREASED [None]
